FAERS Safety Report 5709256-6 (Version None)
Quarter: 2008Q2

REPORT INFORMATION
  Report Type: 
  Country: None (occurrence: None)
  Receive Date: 20080418
  Receipt Date: 20080325
  Transmission Date: 20081010
  Serious: No
  Sender: FDA-Public Use
  Company Number: US-BAYER-200818840NA

PATIENT
  Age: 77 Year
  Sex: Female
  Weight: 70 kg

DRUGS (9)
  1. ULTRAVIST 370 [Suspect]
     Indication: COMPUTERISED TOMOGRAM ABDOMEN
     Dosage: TOTAL DAILY DOSE: 100 ML  UNIT DOSE: 500 ML
     Route: 042
     Dates: start: 20080325, end: 20080325
  2. CALCIUM [Concomitant]
  3. CELEBREX [Concomitant]
  4. TOPROL-XL [Concomitant]
  5. LANOXIN [Concomitant]
  6. PRILOSEC [Concomitant]
  7. K-DUR [Concomitant]
  8. COUMADIN [Concomitant]
  9. ZOVIRAX [Concomitant]

REACTIONS (1)
  - PRURITUS [None]
